FAERS Safety Report 24883903 (Version 1)
Quarter: 2025Q1

REPORT INFORMATION
  Report Type: Spontaneous
  Country: BR (occurrence: BR)
  Receive Date: 20250124
  Receipt Date: 20250124
  Transmission Date: 20250409
  Serious: Yes (Other)
  Sender: JOHNSON AND JOHNSON
  Company Number: BR-JNJFOC-20250130909

PATIENT
  Age: 39 Year
  Sex: Male
  Weight: 90 kg

DRUGS (1)
  1. RISPERDAL [Suspect]
     Active Substance: RISPERIDONE
     Indication: Schizoaffective disorder
     Route: 048

REACTIONS (6)
  - Delirium [Unknown]
  - Psychotic disorder [Unknown]
  - Mental impairment [Unknown]
  - Hallucination, visual [Unknown]
  - Treatment noncompliance [Unknown]
  - Delusion [Unknown]
